FAERS Safety Report 6630722-3 (Version None)
Quarter: 2010Q1

REPORT INFORMATION
  Report Type: 
  Country: None (occurrence: None)
  Receive Date: 20100311
  Receipt Date: 20090601
  Transmission Date: 20100710
  Serious: No
  Sender: FDA-Public Use
  Company Number: US-BIOGENIDEC-2009BI016570

PATIENT
  Sex: Female

DRUGS (3)
  1. AVONEX [Suspect]
     Indication: MULTIPLE SCLEROSIS
     Route: 030
     Dates: end: 20030101
  2. AVONEX [Suspect]
     Route: 030
     Dates: start: 20030101, end: 20090201
  3. DIURETIC (NOS) [Concomitant]
     Indication: HYPERTENSION

REACTIONS (5)
  - COORDINATION ABNORMAL [None]
  - FALL [None]
  - GAIT DISTURBANCE [None]
  - OEDEMA PERIPHERAL [None]
  - PAIN IN EXTREMITY [None]
